FAERS Safety Report 4955833-X (Version None)
Quarter: 2006Q1

REPORT INFORMATION
  Report Type: 
  Country: None (occurrence: None)
  Receive Date: 20060327
  Receipt Date: 20060327
  Transmission Date: 20060701
  Serious: Yes (Other)
  Sender: FDA-Public Use
  Company Number: None

PATIENT
  Sex: Female
  Weight: 90.7194 kg

DRUGS (1)
  1. MORPHINE SULFATE [Suspect]
     Indication: MULTIPLE SCLEROSIS
     Dosage: 90 TID PO
     Route: 048
     Dates: start: 19991019, end: 20060324

REACTIONS (3)
  - PHARMACEUTICAL PRODUCT COMPLAINT [None]
  - PRURITUS GENERALISED [None]
  - RASH [None]
